FAERS Safety Report 6564799-0 (Version None)
Quarter: 2010Q1

REPORT INFORMATION
  Report Type: 
  Country: None (occurrence: None)
  Receive Date: 20100201
  Receipt Date: 20100126
  Transmission Date: 20100710
  Serious: Yes (Other)
  Sender: FDA-Public Use
  Company Number: JP-PFIZER INC-2010012072

PATIENT
  Age: 60 Year
  Sex: Female

DRUGS (1)
  1. ATARAX [Suspect]
     Indication: ANXIETY DISORDER
     Dosage: 25 MG DAILY
     Route: 030
     Dates: start: 20100119

REACTIONS (2)
  - APPLICATION SITE NECROSIS [None]
  - SKIN NECROSIS [None]
